FAERS Safety Report 25161356 (Version 1)
Quarter: 2025Q2

REPORT INFORMATION
  Report Type: Spontaneous
  Country: US (occurrence: None)
  Receive Date: 20250404
  Receipt Date: 20250404
  Transmission Date: 20250717
  Serious: Yes (Hospitalization)
  Sender: FDA-CTU
  Company Number: None

PATIENT
  Age: 68 Year
  Sex: Female

DRUGS (5)
  1. KISUNLA [Suspect]
     Active Substance: DONANEMAB-AZBT
     Indication: Dementia Alzheimer^s type
     Route: 042
     Dates: start: 20250214, end: 20250326
  2. SODIUM CHLOR (50ML/BAG) [Concomitant]
  3. ACETAMINOPHEN [Concomitant]
     Active Substance: ACETAMINOPHEN
  4. SODIUM CHLOR (100ML/BAG) [Concomitant]
  5. DIPHENHYDRAMINE (ALLERGY ) [Concomitant]

REACTIONS (7)
  - Pruritus [None]
  - Cough [None]
  - Dyspnoea [None]
  - Chest discomfort [None]
  - Infusion related reaction [None]
  - Headache [None]
  - Anxiety [None]

NARRATIVE: CASE EVENT DATE: 20250326
